FAERS Safety Report 7816484 (Version 3)
Quarter: 2013Q4

REPORT INFORMATION
  Report Type: Spontaneous
  Country: US (occurrence: US)
  Receive Date: 20110217
  Receipt Date: 20131126
  Transmission Date: 20140711
  Serious: Yes (Hospitalization)
  Sender: FDA-Public Use
  Company Number: US-US-EMD SERONO, INC.-7041431

PATIENT
  Sex: Female

DRUGS (2)
  1. REBIF [Suspect]
     Indication: MULTIPLE SCLEROSIS
     Route: 058
     Dates: start: 20041122, end: 201101
  2. REBIF [Suspect]
     Route: 058
     Dates: start: 201101

REACTIONS (3)
  - Lumbar radiculopathy [Recovered/Resolved]
  - Dysuria [Recovered/Resolved]
  - Gingival recession [Unknown]
